FAERS Safety Report 13354380 (Version 1)
Quarter: 2017Q1

REPORT INFORMATION
  Report Type: Spontaneous
  Country: US (occurrence: US)
  Receive Date: 20170319
  Receipt Date: 20170319
  Transmission Date: 20170429
  Serious: Yes (Hospitalization)
  Sender: FDA-Public Use
  Company Number: None

PATIENT
  Age: 63 Year
  Sex: Male
  Weight: 96.25 kg

DRUGS (6)
  1. NORVASC [Concomitant]
     Active Substance: AMLODIPINE BESYLATE
  2. POLYETHYLENE GLYCOL [Concomitant]
     Active Substance: POLYETHYLENE GLYCOLS
  3. LOVASTATIN. [Concomitant]
     Active Substance: LOVASTATIN
  4. PANTOPRAZOLE [Concomitant]
     Active Substance: PANTOPRAZOLE SODIUM
  5. PREDNISONE. [Suspect]
     Active Substance: PREDNISONE
  6. NIFEREX [Concomitant]
     Active Substance: IRON\POLYSACCHARIDES

REACTIONS (1)
  - Gastric ulcer haemorrhage [None]

NARRATIVE: CASE EVENT DATE: 20170316
